FAERS Safety Report 22216683 (Version 3)
Quarter: 2025Q3

REPORT INFORMATION
  Report Type: Spontaneous
  Country: US (occurrence: US)
  Receive Date: 20230417
  Receipt Date: 20250822
  Transmission Date: 20251021
  Serious: Yes (Other)
  Sender: ENDO
  Company Number: US-ENDO PHARMACEUTICALS INC-2023-000089

PATIENT
  Age: 71 Year
  Sex: Male

DRUGS (6)
  1. AVEED [Suspect]
     Active Substance: TESTOSTERONE UNDECANOATE
     Indication: Testicular failure
     Route: 030
     Dates: start: 20221111
  2. AVEED [Suspect]
     Active Substance: TESTOSTERONE UNDECANOATE
     Indication: Hypogonadism
     Route: 065
  3. AVEED [Suspect]
     Active Substance: TESTOSTERONE UNDECANOATE
     Indication: Prostatic specific antigen increased
     Route: 065
  4. AVEED [Suspect]
     Active Substance: TESTOSTERONE UNDECANOATE
     Indication: Prostatic mass
     Route: 065
  5. AVEED [Suspect]
     Active Substance: TESTOSTERONE UNDECANOATE
     Indication: Benign prostatic hyperplasia
     Route: 065
  6. TESTOSTERONE [Suspect]
     Active Substance: TESTOSTERONE
     Indication: Hypogonadism
     Route: 051

REACTIONS (8)
  - Bladder cancer [Unknown]
  - Prostate cancer [Unknown]
  - Faeces discoloured [Unknown]
  - Diarrhoea [Unknown]
  - Acne [Unknown]
  - Rash [Unknown]
  - Breast enlargement [Unknown]
  - Malaise [Unknown]

NARRATIVE: CASE EVENT DATE: 20230109
